FAERS Safety Report 18871115 (Version 2)
Quarter: 2021Q2

REPORT INFORMATION
  Report Type: Spontaneous
  Country: US (occurrence: US)
  Receive Date: 20210210
  Receipt Date: 20210419
  Transmission Date: 20210717
  Serious: Yes (Hospitalization)
  Sender: FDA-Public Use
  Company Number: US-CELGENEUS-USA-20210201485

PATIENT
  Age: 43 Year
  Sex: Female
  Weight: 55.84 kg

DRUGS (6)
  1. ABRAXANE [Suspect]
     Active Substance: PACLITAXEL
     Indication: BREAST CANCER
     Dosage: 134 MILLIGRAM
     Route: 041
     Dates: start: 20201021, end: 20201109
  2. NEUPOGEN [Concomitant]
     Active Substance: FILGRASTIM
     Indication: NEUTROPENIA
     Route: 065
     Dates: start: 20201021, end: 20201025
  3. AVELUMAB [Suspect]
     Active Substance: AVELUMAB
     Indication: BREAST CANCER
     Dosage: 800 MILLIGRAM
     Route: 041
     Dates: start: 20190717, end: 20200909
  4. TALAZOPARIB. [Suspect]
     Active Substance: TALAZOPARIB
     Indication: BREAST CANCER
     Dosage: 1 MILLIGRAM
     Route: 048
     Dates: start: 20190717, end: 20200920
  5. ABRAXANE [Suspect]
     Active Substance: PACLITAXEL
     Dosage: 134 MILLIGRAM
     Route: 041
     Dates: start: 20201109
  6. IBRANCE [Concomitant]
     Active Substance: PALBOCICLIB
     Indication: BREAST CANCER
     Route: 065
     Dates: start: 20201001, end: 20201013

REACTIONS (1)
  - Febrile neutropenia [Recovered/Resolved]

NARRATIVE: CASE EVENT DATE: 20201026
